FAERS Safety Report 6579944-0 (Version None)
Quarter: 2010Q1

REPORT INFORMATION
  Report Type: 
  Country: None (occurrence: None)
  Receive Date: 20100212
  Receipt Date: 20100201
  Transmission Date: 20100710
  Serious: Yes (Hospitalization)
  Sender: FDA-Public Use
  Company Number: AU-PFIZER INC-2010013188

PATIENT
  Age: 63 Year
  Sex: Female

DRUGS (2)
  1. ZYVOX [Suspect]
     Indication: NOCARDIOSIS
     Dosage: 600 MG, 2X/DAY
     Route: 048
     Dates: start: 20090528, end: 20090706
  2. CYCLOPHOSPHAMIDE [Concomitant]

REACTIONS (2)
  - MALAISE [None]
  - PANCYTOPENIA [None]
